FAERS Safety Report 7222586-4 (Version None)
Quarter: 2011Q1

REPORT INFORMATION
  Report Type: 
  Country: None (occurrence: None)
  Receive Date: 20110112
  Receipt Date: 20101228
  Transmission Date: 20110831
  Serious: No
  Sender: FDA-Public Use
  Company Number: US-B.I. PHARMACEUTICALS,INC./RIDGEFIELD-2011-BP-00157BP

PATIENT
  Age: 77 Year
  Sex: Male

DRUGS (6)
  1. PRADAXA [Suspect]
     Indication: ATRIAL FIBRILLATION
     Dosage: 300 MG
     Route: 048
     Dates: start: 20101220
  2. LIPITOR [Concomitant]
  3. LISINOPRIL [Concomitant]
  4. DILTIAZEM [Concomitant]
  5. PROPRANOLOL HYDROCHLORIDE [Concomitant]
  6. PRADAXA [Suspect]
     Indication: PROPHYLAXIS

REACTIONS (1)
  - DYSPNOEA [None]
